FAERS Safety Report 6309926-5 (Version None)
Quarter: 2009Q3

REPORT INFORMATION
  Report Type: 
  Country: None (occurrence: None)
  Receive Date: 20090814
  Receipt Date: 20090813
  Transmission Date: 20100115
  Serious: Yes (Hospitalization)
  Sender: FDA-Public Use
  Company Number: B0514960A

PATIENT
  Sex: Female

DRUGS (2)
  1. DEROXAT [Suspect]
     Dosage: 20MG PER DAY
     Dates: end: 20080205
  2. LOXAPAC [Suspect]
     Dates: end: 20080205

REACTIONS (7)
  - CARDIAC MURMUR [None]
  - CYANOSIS [None]
  - DRUG EXPOSURE DURING PREGNANCY [None]
  - MALAISE [None]
  - MOANING [None]
  - PALLOR [None]
  - TREMOR [None]
